FAERS Safety Report 9066443 (Version 1)
Quarter: 2013Q1

REPORT INFORMATION
  Report Type: Spontaneous
  Country: AU (occurrence: AU)
  Receive Date: 20130214
  Receipt Date: 20130214
  Transmission Date: 20140127
  Serious: Yes (Other)
  Sender: FDA-Public Use
  Company Number: AU-ROCHE-1189265

PATIENT
  Age: 52 Year
  Sex: Male

DRUGS (3)
  1. RITUXIMAB [Suspect]
     Indication: CHRONIC LYMPHOCYTIC LEUKAEMIA
     Route: 065
  2. CYCLOPHOSPHAMIDE [Concomitant]
  3. FLUDARABINE [Concomitant]

REACTIONS (1)
  - Chronic lymphocytic leukaemia refractory [Unknown]
